FAERS Safety Report 12263601 (Version 1)
Quarter: 2016Q2

REPORT INFORMATION
  Report Type: Spontaneous
  Country: BR (occurrence: BR)
  Receive Date: 20160413
  Receipt Date: 20160413
  Transmission Date: 20160815
  Serious: Yes (Other)
  Sender: FDA-Public Use
  Company Number: BR-PFIZER INC-2016202311

PATIENT
  Age: 44 Year
  Sex: Female
  Weight: 73 kg

DRUGS (3)
  1. DIMINUT [Concomitant]
     Dosage: UNK
     Route: 048
     Dates: start: 2013
  2. EUTIROX [Concomitant]
     Active Substance: LEVOTHYROXINE SODIUM
     Indication: HYPOTHYROIDISM
     Dosage: 150 MG, UNK
     Route: 048
  3. DOSTINEX [Suspect]
     Active Substance: CABERGOLINE
     Indication: BLOOD PROLACTIN INCREASED
     Dosage: 0.5 MG, UNK
     Route: 048
     Dates: start: 201205, end: 201510

REACTIONS (2)
  - Blood prolactin abnormal [Unknown]
  - Prolactinoma [Unknown]
